FAERS Safety Report 7114136-8 (Version None)
Quarter: 2010Q4

REPORT INFORMATION
  Report Type: 
  Country: None (occurrence: None)
  Receive Date: 20101119
  Receipt Date: 20101109
  Transmission Date: 20110411
  Serious: Yes (Other)
  Sender: FDA-Public Use
  Company Number: US-PFIZER INC-2010137233

PATIENT
  Sex: Female
  Weight: 123.36 kg

DRUGS (10)
  1. CHANTIX [Suspect]
     Indication: SMOKING CESSATION THERAPY
     Dosage: 0.5 MG, 1X/DAY
     Route: 048
     Dates: start: 20100825, end: 20100101
  2. CHANTIX [Suspect]
     Dosage: 1 MG, 2X/DAY
     Route: 048
     Dates: start: 20100922, end: 20100901
  3. CHANTIX [Suspect]
     Dosage: UNK
     Route: 048
     Dates: start: 20101027
  4. LIPITOR [Concomitant]
     Dosage: UNK
  5. LEXAPRO [Concomitant]
     Indication: DEPRESSION
     Dosage: 30 MG, 1X/DAY
  6. XANAX [Concomitant]
     Dosage: UNK
  7. CLARITIN [Concomitant]
     Dosage: UNK
  8. ZETIA [Concomitant]
     Dosage: UNK
  9. ALBUTEROL [Concomitant]
     Dosage: UNK
  10. MONTELUKAST SODIUM [Concomitant]
     Dosage: UNK

REACTIONS (5)
  - AGGRESSION [None]
  - HYPERSENSITIVITY [None]
  - HYPOTHYROIDISM [None]
  - INSOMNIA [None]
  - LOGORRHOEA [None]
